FAERS Safety Report 20067302 (Version 4)
Quarter: 2022Q2

REPORT INFORMATION
  Report Type: Other
  Country: AU (occurrence: None)
  Receive Date: 20211115
  Receipt Date: 20220525
  Transmission Date: 20220721
  Serious: Yes (Hospitalization)
  Sender: FDA-Public Use
  Company Number: AU-ROCHE-2950166

PATIENT
  Age: 71 Year
  Sex: Female
  Weight: 64 kg

DRUGS (1)
  1. OCREVUS [Suspect]
     Active Substance: OCRELIZUMAB
     Indication: Relapsing-remitting multiple sclerosis
     Dosage: INFUSION 6 ON 07/SEP/2020 AND INFUSION 7 ON 17/MAY/2022
     Route: 041
     Dates: start: 20180322

REACTIONS (2)
  - Diverticulitis intestinal perforated [Not Recovered/Not Resolved]
  - Colostomy closure [Not Recovered/Not Resolved]

NARRATIVE: CASE EVENT DATE: 20211027
